FAERS Safety Report 7485536-1 (Version None)
Quarter: 2011Q2

REPORT INFORMATION
  Report Type: 
  Country: None (occurrence: None)
  Receive Date: 20110517
  Receipt Date: 20110512
  Transmission Date: 20111010
  Serious: Yes (Death, Hospitalization, Other)
  Sender: FDA-Public Use
  Company Number: BR-ACTELION-A-CH2010-40721

PATIENT
  Sex: Female
  Weight: 55 kg

DRUGS (6)
  1. TRACLEER [Suspect]
     Indication: PULMONARY ARTERIAL HYPERTENSION
     Dosage: 125 MG, BID
     Route: 048
     Dates: end: 20110225
  2. PENTOXIFYLLINE [Suspect]
     Dosage: 800 MG, OD
     Dates: start: 20050101
  3. TRACLEER [Suspect]
     Dosage: 62.5 MG, BID
     Route: 048
     Dates: start: 20080801
  4. CAPTOPRIL [Suspect]
     Dosage: 50 MG, OD
     Dates: start: 20050101
  5. ASPIRIN [Concomitant]
  6. NIFEDIPINE [Suspect]
     Dosage: 20 MG, OD
     Dates: start: 20050101

REACTIONS (6)
  - CHEST PAIN [None]
  - PERICARDIAL EFFUSION [None]
  - DYSPNOEA [None]
  - PERICARDIAL DRAINAGE [None]
  - PERICARDITIS [None]
  - MENTAL DISORDER [None]
